FAERS Safety Report 16683163 (Version 1)
Quarter: 2019Q3

REPORT INFORMATION
  Report Type: Spontaneous
  Country: GB (occurrence: GB)
  Receive Date: 20190808
  Receipt Date: 20190808
  Transmission Date: 20191004
  Serious: Yes (Other)
  Sender: FDA-Public Use
  Company Number: GB-TEVA-2019-GB-1090105

PATIENT
  Age: 40 Year
  Sex: Male

DRUGS (1)
  1. MELOXICAM. [Suspect]
     Active Substance: MELOXICAM
     Dosage: WITH OR AFTER FOOD.1 DOSAGE FORMS
     Route: 048
     Dates: start: 20190603, end: 20190604

REACTIONS (3)
  - Ocular hyperaemia [Unknown]
  - Increased tendency to bruise [Recovered/Resolved]
  - Haematochezia [Unknown]

NARRATIVE: CASE EVENT DATE: 20190603
